FAERS Safety Report 4999887-3 (Version None)
Quarter: 2006Q2

REPORT INFORMATION
  Report Type: 
  Country: None (occurrence: None)
  Receive Date: 20060509
  Receipt Date: 20060426
  Transmission Date: 20061013
  Serious: Yes (Life-Threatening, Hospitalization)
  Sender: FDA-Public Use
  Company Number: S05-CAN-05613-01

PATIENT
  Age: 86 Year
  Sex: Female

DRUGS (10)
  1. CELEXA [Suspect]
     Indication: DEPRESSION
     Dosage: 20 MG QD PO
     Route: 048
     Dates: start: 20050824, end: 20050908
  2. CELEXA [Suspect]
     Indication: DEPRESSION
     Dosage: 10 MG QD PO
     Route: 048
     Dates: start: 20050816, end: 20050823
  3. METOPROLOL TARTRATE [Suspect]
     Indication: ATRIAL FIBRILLATION
     Dosage: 50 MG QD PO
     Route: 048
  4. METOPROLOL TARTRATE [Suspect]
     Indication: HYPERTENSION
     Dosage: 50 MG QD PO
     Route: 048
  5. LANOXIN [Suspect]
     Dosage: 0.125 MG QD PO
     Route: 048
     Dates: start: 20050516
  6. COUMADIN [Concomitant]
  7. FUROSEMIDE [Concomitant]
  8. ALTACE [Concomitant]
  9. NORVASC [Concomitant]
  10. VITAMIN B-12 [Concomitant]

REACTIONS (4)
  - CARDIAC PACEMAKER INSERTION [None]
  - HEART RATE DECREASED [None]
  - HEART RATE IRREGULAR [None]
  - LOSS OF CONSCIOUSNESS [None]
